FAERS Safety Report 5224855-6 (Version None)
Quarter: 2007Q1

REPORT INFORMATION
  Report Type: 
  Country: None (occurrence: None)
  Receive Date: 20070131
  Receipt Date: 20070118
  Transmission Date: 20070707
  Serious: Yes (Hospitalization)
  Sender: FDA-Public Use
  Company Number: JP-NOVOPROD-242834

PATIENT
  Sex: Female
  Weight: 11.3 kg

DRUGS (6)
  1. NORDITROPIN SIMPLEXX [Suspect]
     Indication: SMALL FOR DATES BABY
     Dosage: .033 MG/KG, QD
     Route: 058
     Dates: start: 20040317, end: 20050611
  2. NORDITROPIN SIMPLEXX [Suspect]
     Dosage: .4 MG, QD
     Route: 058
     Dates: start: 20051104
  3. ASVERIN [Concomitant]
     Dosage: POWDER
     Dates: start: 20050217, end: 20050322
  4. MUCODYNE [Concomitant]
     Dates: start: 20050217, end: 20050322
  5. HOKUNALIN [Concomitant]
     Dates: start: 20050217, end: 20050322
  6. THEO-DUR [Concomitant]
     Dates: start: 20041224, end: 20050307

REACTIONS (3)
  - JOINT DISLOCATION [None]
  - LYMPHADENOPATHY [None]
  - TORTICOLLIS [None]
